FAERS Safety Report 17834801 (Version 5)
Quarter: 2020Q4

REPORT INFORMATION
  Report Type: Report from Study
  Country: None (occurrence: US)
  Receive Date: 20200528
  Receipt Date: 20201015
  Transmission Date: 20210113
  Serious: Yes (Hospitalization, Other)
  Sender: FDA-Public Use
  Company Number: US-ABBVIE-20K-163-3413454-00

PATIENT
  Age: 56 Year
  Sex: Female
  Weight: 88.53 kg

DRUGS (6)
  1. HUMIRA [Suspect]
     Active Substance: ADALIMUMAB
     Route: 058
     Dates: start: 202007
  2. OXYBUTYNIN. [Concomitant]
     Active Substance: OXYBUTYNIN CHLORIDE
     Indication: URINARY INCONTINENCE
  3. ESOMEPRAZOLE MAGNESIUM. [Concomitant]
     Active Substance: ESOMEPRAZOLE MAGNESIUM
     Indication: DYSPEPSIA
  4. PEPCID [Concomitant]
     Active Substance: FAMOTIDINE
     Indication: DYSPEPSIA
  5. HUMIRA [Suspect]
     Active Substance: ADALIMUMAB
     Indication: CROHN^S DISEASE
     Route: 058
     Dates: start: 201905, end: 202006
  6. CYMBALTA [Concomitant]
     Active Substance: DULOXETINE HYDROCHLORIDE
     Indication: ARTHROPATHY

REACTIONS (12)
  - Weight decreased [Unknown]
  - Muscle spasms [Unknown]
  - Hernia [Recovering/Resolving]
  - Crohn^s disease [Unknown]
  - Ileostomy [Recovering/Resolving]
  - Ulcer [Unknown]
  - Drug ineffective [Unknown]
  - Post procedural complication [Unknown]
  - Fistula [Recovering/Resolving]
  - Heart valve incompetence [Unknown]
  - White blood cell count increased [Unknown]
  - Food poisoning [Unknown]

NARRATIVE: CASE EVENT DATE: 201905
